FAERS Safety Report 12839253 (Version 2)
Quarter: 2016Q4

REPORT INFORMATION
  Report Type: Spontaneous
  Country: US (occurrence: US)
  Receive Date: 20161012
  Receipt Date: 20161121
  Transmission Date: 20170207
  Serious: No
  Sender: FDA-Public Use
  Company Number: US-PFIZER INC-2016470460

PATIENT
  Sex: Female

DRUGS (2)
  1. LYRICA [Suspect]
     Active Substance: PREGABALIN
     Dosage: 50 MG, UNK
  2. LYRICA [Suspect]
     Active Substance: PREGABALIN
     Dosage: 100 MG, UNK

REACTIONS (6)
  - Paraesthesia [Unknown]
  - Back disorder [Unknown]
  - Peripheral coldness [Unknown]
  - Drug intolerance [Recovered/Resolved]
  - Neuralgia [Unknown]
  - Condition aggravated [Unknown]
